FAERS Safety Report 5519699-1 (Version None)
Quarter: 2007Q4

REPORT INFORMATION
  Report Type: 
  Country: None (occurrence: None)
  Receive Date: 20071116
  Receipt Date: 20071106
  Transmission Date: 20080405
  Serious: Yes (Other)
  Sender: FDA-Public Use
  Company Number: FR-JNJFOC-20070302939

PATIENT
  Age: 16 Year
  Sex: Female

DRUGS (1)
  1. CONTRAMAL [Suspect]
     Indication: DRUG USE FOR UNKNOWN INDICATION
     Route: 048

REACTIONS (6)
  - ASTHENIA [None]
  - EXPIRED DRUG ADMINISTERED [None]
  - MIOSIS [None]
  - OVERDOSE [None]
  - PARAESTHESIA [None]
  - TACHYCARDIA [None]
